FAERS Safety Report 14619852 (Version 1)
Quarter: 2018Q1

REPORT INFORMATION
  Report Type: Spontaneous
  Country: DE (occurrence: DE)
  Receive Date: 20180309
  Receipt Date: 20180309
  Transmission Date: 20180509
  Serious: Yes (Life-Threatening, Hospitalization)
  Sender: FDA-Public Use
  Company Number: DE-CELGENEUS-DEU-20180208247

PATIENT
  Age: 71 Year
  Sex: Female
  Weight: 85 kg

DRUGS (13)
  1. ABRAXANE [Suspect]
     Active Substance: PACLITAXEL
     Dosage: 14.2857 MILLIGRAM/SQ. METER
     Route: 041
     Dates: start: 20130411
  2. BEVACIZUMAB. [Suspect]
     Active Substance: BEVACIZUMAB
     Route: 041
     Dates: start: 20120413, end: 20120720
  3. TAVEGIL [Concomitant]
     Active Substance: CLEMASTINE FUMARATE
     Indication: PRODUCT USED FOR UNKNOWN INDICATION
     Route: 041
  4. ABRAXANE [Suspect]
     Active Substance: PACLITAXEL
     Dosage: 12.8571 MILLIGRAM/SQ. METER
     Route: 041
     Dates: start: 20120413, end: 20120713
  5. DEXAMETHASONE. [Concomitant]
     Active Substance: DEXAMETHASONE
     Indication: PRODUCT USED FOR UNKNOWN INDICATION
     Route: 041
  6. TORASEMID [Concomitant]
     Active Substance: TORSEMIDE
     Indication: PRODUCT USED FOR UNKNOWN INDICATION
     Route: 065
  7. ABRAXANE [Suspect]
     Active Substance: PACLITAXEL
     Dosage: 12.8571 MILLIGRAM/SQ. METER
     Route: 041
     Dates: start: 20120720
  8. BEVACIZUMAB. [Suspect]
     Active Substance: BEVACIZUMAB
     Route: 041
     Dates: start: 20120706
  9. ABRAXANE [Suspect]
     Active Substance: PACLITAXEL
     Indication: BREAST CANCER
     Dosage: 14.2857 MILLIGRAM/SQ. METER
     Route: 041
     Dates: start: 20120914, end: 20130405
  10. BEVACIZUMAB. [Suspect]
     Active Substance: BEVACIZUMAB
     Indication: BREAST CANCER
     Route: 041
     Dates: start: 20120914
  11. DELMUNO [Concomitant]
     Active Substance: FELODIPINE
     Indication: PRODUCT USED FOR UNKNOWN INDICATION
     Route: 065
     Dates: start: 2012
  12. ONDANSETRON [Concomitant]
     Active Substance: ONDANSETRON
     Indication: PRODUCT USED FOR UNKNOWN INDICATION
     Route: 041
  13. ABRAXANE [Suspect]
     Active Substance: PACLITAXEL
     Dosage: 26.2857 MILLIGRAM
     Route: 041
     Dates: start: 20120914

REACTIONS (3)
  - Sepsis [Recovered/Resolved]
  - Nausea [Recovered/Resolved]
  - Leukopenia [Unknown]

NARRATIVE: CASE EVENT DATE: 20120723
